FAERS Safety Report 9471249 (Version 2)
Quarter: 2013Q4

REPORT INFORMATION
  Report Type: Report from Study
  Country: CA (occurrence: CA)
  Receive Date: 20130822
  Receipt Date: 20131001
  Transmission Date: 20140711
  Serious: Yes (Other)
  Sender: FDA-Public Use
  Company Number: CA-INCYTE CORPORATION-2013IN001909

PATIENT
  Age: 73 Year
  Sex: Female

DRUGS (6)
  1. JAKAVI [Suspect]
     Indication: MYELOFIBROSIS
     Dosage: 15 MG, BID
     Route: 048
     Dates: start: 20130813, end: 20130818
  2. JAKAVI [Suspect]
     Dosage: 15 MG, QD
     Route: 048
     Dates: start: 20130822
  3. RANITIDINE [Concomitant]
  4. XARELTO [Concomitant]
  5. PREDNISONE [Concomitant]
  6. FOLATE [Concomitant]

REACTIONS (11)
  - Blindness transient [Unknown]
  - Feeling cold [Unknown]
  - Myalgia [Unknown]
  - Oedema peripheral [Unknown]
  - Pain in extremity [Unknown]
  - Fatigue [Unknown]
  - Somnolence [Unknown]
  - Dyspnoea [Unknown]
  - Bone pain [Unknown]
  - White blood cell count abnormal [Unknown]
  - Constipation [Not Recovered/Not Resolved]
